FAERS Safety Report 4665439-8 (Version None)
Quarter: 2005Q2

REPORT INFORMATION
  Report Type: 
  Country: None (occurrence: None)
  Receive Date: 20050518
  Receipt Date: 20050518
  Transmission Date: 20051028
  Serious: Yes (Life-Threatening, Hospitalization)
  Sender: FDA-Public Use
  Company Number: None

PATIENT
  Sex: Male

DRUGS (7)
  1. LISINOPRIL [Suspect]
     Indication: HYPERTENSION
     Dosage: 40 MG DAILY ORAL
     Route: 048
     Dates: start: 20040608, end: 20041214
  2. GLYBURIDE [Concomitant]
  3. METFORMIN [Concomitant]
  4. ASPIRIN [Concomitant]
  5. FLUNISOLIDE INHALER [Concomitant]
  6. RANITIDINE [Concomitant]
  7. ALBUTEROL [Concomitant]

REACTIONS (1)
  - ANGIONEUROTIC OEDEMA [None]
